FAERS Safety Report 10649792 (Version 3)
Quarter: 2015Q4

REPORT INFORMATION
  Report Type: Spontaneous
  Country: US (occurrence: US)
  Receive Date: 20141212
  Receipt Date: 20151201
  Transmission Date: 20160304
  Serious: Yes (Other)
  Sender: FDA-Public Use
  Company Number: US-CELGENE-163-21880-13113269

PATIENT

DRUGS (6)
  1. ACY-1215 [Suspect]
     Active Substance: RICOLINOSTAT
     Route: 048
  2. ACY-1215 [Suspect]
     Active Substance: RICOLINOSTAT
     Route: 048
  3. ACY-1215 [Suspect]
     Active Substance: RICOLINOSTAT
     Route: 048
  4. DEXAMETHASONE. [Suspect]
     Active Substance: DEXAMETHASONE
     Indication: PLASMA CELL MYELOMA
     Dosage: 40 MILLIGRAM
     Route: 065
  5. REVLIMID [Suspect]
     Active Substance: LENALIDOMIDE
     Indication: PLASMA CELL MYELOMA
     Dosage: 15-25 MG
     Route: 048
  6. ACY-1215 [Suspect]
     Active Substance: RICOLINOSTAT
     Indication: PLASMA CELL MYELOMA
     Dosage: 160-240 MG
     Route: 048

REACTIONS (9)
  - Laboratory test abnormal [Unknown]
  - Diarrhoea [Unknown]
  - Drug dose omission [Unknown]
  - Plasma cell myeloma [Unknown]
  - Vomiting [Unknown]
  - Rash [Unknown]
  - Dizziness [Unknown]
  - Nausea [Unknown]
  - Syncope [Unknown]
